FAERS Safety Report 20668684 (Version 1)
Quarter: 2022Q2

REPORT INFORMATION
  Report Type: Spontaneous
  Country: CA (occurrence: CA)
  Receive Date: 20220404
  Receipt Date: 20220404
  Transmission Date: 20220720
  Serious: Yes (Life-Threatening, Hospitalization)
  Sender: FDA-Public Use
  Company Number: None

PATIENT
  Age: 35 Year
  Sex: Female
  Weight: 94 kg

DRUGS (10)
  1. FLUOROURACIL [Suspect]
     Active Substance: FLUOROURACIL
     Indication: Rectal cancer metastatic
     Route: 042
  2. DIMENHYDRINATE [Concomitant]
     Active Substance: DIMENHYDRINATE
     Route: 042
  3. LEUCOVORIN CALCIUM [Concomitant]
     Active Substance: LEUCOVORIN CALCIUM
     Route: 042
  4. LOMOTIL [Concomitant]
     Active Substance: ATROPINE SULFATE\DIPHENOXYLATE HYDROCHLORIDE
  5. LORAZEPAM [Concomitant]
     Active Substance: LORAZEPAM
  6. NYSTATIN [Concomitant]
     Active Substance: NYSTATIN
  7. METOCLOPRAMIDE [Concomitant]
     Active Substance: METOCLOPRAMIDE
  8. ONDANSETRON [Concomitant]
     Active Substance: ONDANSETRON
  9. OXALIPLATIN [Concomitant]
     Active Substance: OXALIPLATIN
  10. POTASSIUM CHLORIDE [Concomitant]
     Active Substance: POTASSIUM CHLORIDE
     Route: 042

REACTIONS (1)
  - Escherichia bacteraemia [Recovering/Resolving]
